FAERS Safety Report 7685703-8 (Version None)
Quarter: 2011Q3

REPORT INFORMATION
  Report Type: 
  Country: None (occurrence: None)
  Receive Date: 20110816
  Receipt Date: 20110811
  Transmission Date: 20111222
  Serious: Yes (Hospitalization, Other)
  Sender: FDA-Public Use
  Company Number: US-PFIZER INC-2011074197

PATIENT
  Sex: Female

DRUGS (5)
  1. ZOMIG [Concomitant]
     Indication: MIGRAINE
     Dosage: UNK
     Dates: start: 20060101
  2. CHANTIX [Suspect]
     Indication: SMOKING CESSATION THERAPY
     Dosage: STARTER PACK
     Dates: start: 20090301, end: 20090401
  3. CELEXA [Concomitant]
     Indication: DEPRESSION
     Dosage: UNK
     Dates: end: 20110101
  4. SYNTHROID [Concomitant]
     Indication: THYROID DISORDER
     Dosage: UNK
     Dates: start: 20000101
  5. FLEXERIL [Concomitant]
     Indication: MUSCLE RELAXANT THERAPY
     Dosage: UNK
     Dates: start: 20080101, end: 20100101

REACTIONS (9)
  - SUICIDE ATTEMPT [None]
  - PARANOIA [None]
  - ANXIETY [None]
  - MOOD SWINGS [None]
  - DELUSION [None]
  - PANIC ATTACK [None]
  - HOSTILITY [None]
  - INTENTIONAL OVERDOSE [None]
  - DEPRESSION [None]
